FAERS Safety Report 12011629 (Version 1)
Quarter: 2016Q1

REPORT INFORMATION
  Report Type: Spontaneous
  Country: None (occurrence: FR)
  Receive Date: 20160205
  Receipt Date: 20160205
  Transmission Date: 20160526
  Serious: Yes (Life-Threatening)
  Sender: FDA-Public Use
  Company Number: FR-MEDAC PHARMA, INC.-1047380

PATIENT
  Age: 70 Year
  Sex: Male

DRUGS (2)
  1. ENBREL [Suspect]
     Active Substance: ETANERCEPT
     Route: 058
     Dates: start: 20120403, end: 201512
  2. METHOTREXATE [Suspect]
     Active Substance: METHOTREXATE
     Dates: start: 2007

REACTIONS (1)
  - Lung carcinoma cell type unspecified stage 0 [Unknown]

NARRATIVE: CASE EVENT DATE: 201505
